FAERS Safety Report 15489884 (Version 1)
Quarter: 2018Q4

REPORT INFORMATION
  Report Type: Spontaneous
  Country: US (occurrence: US)
  Receive Date: 20181011
  Receipt Date: 20181011
  Transmission Date: 20190205
  Serious: No
  Sender: FDA-Public Use
  Company Number: US-PERRIGO-18US000616

PATIENT
  Sex: Male
  Weight: 102.4 kg

DRUGS (9)
  1. NICOTINE POLACRILEX [Suspect]
     Active Substance: NICOTINE
     Indication: SMOKING CESSATION THERAPY
     Dosage: 16 MG, TID, PRN
     Route: 002
     Dates: start: 2016, end: 201801
  2. CEPHALEXIN                         /00145501/ [Concomitant]
     Active Substance: CEPHALEXIN
     Indication: BRAIN NEOPLASM
     Dosage: UNK
     Route: 048
     Dates: start: 2016
  3. METOPROLOL. [Concomitant]
     Active Substance: METOPROLOL
     Indication: BRAIN NEOPLASM
     Dosage: UNK
     Route: 048
     Dates: start: 2016
  4. KEPPRA [Concomitant]
     Active Substance: LEVETIRACETAM
     Indication: BRAIN NEOPLASM
     Dosage: UNK
     Route: 048
     Dates: start: 2016
  5. DIAZEPAM. [Concomitant]
     Active Substance: DIAZEPAM
     Indication: BRAIN NEOPLASM
     Dosage: UNK
     Route: 048
     Dates: start: 2016
  6. ATIVAN [Concomitant]
     Active Substance: LORAZEPAM
     Indication: BRAIN NEOPLASM
     Dosage: UNK
     Route: 048
     Dates: start: 2016
  7. PRENATAL VITAMINS                  /07499601/ [Concomitant]
     Active Substance: VITAMINS
     Indication: BRAIN NEOPLASM
     Dosage: UNK
     Route: 048
     Dates: start: 2016
  8. GABAPENTIN. [Concomitant]
     Active Substance: GABAPENTIN
     Indication: BRAIN NEOPLASM
     Dosage: UNK
     Route: 048
     Dates: start: 2016
  9. WARFARIN [Concomitant]
     Active Substance: WARFARIN
     Indication: BRAIN NEOPLASM
     Dosage: UNK
     Route: 048
     Dates: start: 2016

REACTIONS (2)
  - Incorrect dose administered [Recovered/Resolved]
  - Drug ineffective [Unknown]

NARRATIVE: CASE EVENT DATE: 2016
